FAERS Safety Report 17611749 (Version 9)
Quarter: 2022Q1

REPORT INFORMATION
  Report Type: Spontaneous
  Country: US (occurrence: US)
  Receive Date: 20200401
  Receipt Date: 20220325
  Transmission Date: 20220423
  Serious: Yes (Hospitalization)
  Sender: FDA-Public Use
  Company Number: US-ALKERMES INC.-ALK-2019-004448

PATIENT
  Age: 29 Year
  Sex: Female

DRUGS (6)
  1. VIVITROL [Suspect]
     Active Substance: NALTREXONE
     Indication: Drug dependence
     Dosage: 380 MG, QMO
     Route: 030
     Dates: start: 20190903, end: 20190903
  2. VIVITROL [Suspect]
     Active Substance: NALTREXONE
     Dosage: 380 MG, QMO
     Route: 030
     Dates: start: 20190719, end: 20190719
  3. VIVITROL [Suspect]
     Active Substance: NALTREXONE
     Dosage: 380 MG, QMO
     Route: 030
     Dates: start: 20190625, end: 20190625
  4. VIVITROL [Suspect]
     Active Substance: NALTREXONE
     Dosage: 380 MG, QMO
     Route: 030
     Dates: start: 2016, end: 2016
  5. VIVITROL [Suspect]
     Active Substance: NALTREXONE
     Dosage: 380 MG, QMO
     Route: 030
     Dates: start: 2011, end: 2011
  6. VIVITROL [Suspect]
     Active Substance: NALTREXONE
     Dosage: 380 MG, QMO
     Route: 030

REACTIONS (16)
  - Gastroenteritis viral [Unknown]
  - Diarrhoea [Unknown]
  - Vomiting [Unknown]
  - Dizziness [Unknown]
  - Product dose omission issue [Recovered/Resolved]
  - Feeling abnormal [Recovered/Resolved]
  - Coronavirus infection [Recovered/Resolved]
  - Drug abuse [Not Recovered/Not Resolved]
  - Drug dependence [Recovered/Resolved]
  - Muscle rigidity [Recovered/Resolved]
  - Anxiety [Recovered/Resolved]
  - Euphoric mood [Recovered/Resolved]
  - Drug use disorder [Recovering/Resolving]
  - Breast pain [Not Recovered/Not Resolved]
  - Mood swings [Not Recovered/Not Resolved]
  - Nasopharyngitis [Not Recovered/Not Resolved]

NARRATIVE: CASE EVENT DATE: 20190904
